FAERS Safety Report 12528237 (Version 5)
Quarter: 2016Q4

REPORT INFORMATION
  Report Type: Report from Study
  Country: BR (occurrence: BR)
  Receive Date: 20160705
  Receipt Date: 20161013
  Transmission Date: 20170207
  Serious: Yes (Other)
  Sender: FDA-Public Use
  Company Number: BR-JNJFOC-20160616895

PATIENT
  Age: 83 Year
  Sex: Female
  Weight: 63 kg

DRUGS (15)
  1. SIMPONI [Suspect]
     Active Substance: GOLIMUMAB
     Indication: RHEUMATOID ARTHRITIS
     Route: 058
     Dates: start: 20160519
  2. SELOZOK [Concomitant]
     Active Substance: METOPROLOL SUCCINATE
     Route: 065
  3. SIMVASTATIN. [Concomitant]
     Active Substance: SIMVASTATIN
     Route: 065
  4. DIACTANE [Concomitant]
     Route: 065
  5. HYDROCHLOROTHIAZIDE. [Concomitant]
     Active Substance: HYDROCHLOROTHIAZIDE
     Route: 065
  6. FOLIC ACID. [Concomitant]
     Active Substance: FOLIC ACID
     Route: 065
  7. METHOTREXATE. [Concomitant]
     Active Substance: METHOTREXATE
     Route: 065
  8. PURAN [Concomitant]
     Active Substance: LEVOTHYROXINE SODIUM
     Route: 065
  9. VANNAIR [Concomitant]
     Active Substance: BUDESONIDE\FORMOTEROL FUMARATE DIHYDRATE
     Route: 065
  10. BUDESONIDE. [Concomitant]
     Active Substance: BUDESONIDE
     Route: 065
  11. SIMPONI [Suspect]
     Active Substance: GOLIMUMAB
     Indication: RHEUMATOID ARTHRITIS
     Route: 058
     Dates: start: 20140927
  12. DEFLANIL [Concomitant]
     Route: 065
  13. ACETYLSALICYLIC ACID [Concomitant]
     Active Substance: ASPIRIN
     Route: 065
  14. CALCIUM+D3 [Concomitant]
     Route: 065
  15. FORMOTEROL FUMARATE DIHYDRATE [Concomitant]
     Active Substance: FORMOTEROL FUMARATE DIHYDRATE
     Route: 065

REACTIONS (11)
  - Urinary tract infection [Unknown]
  - Pain in extremity [Recovered/Resolved]
  - Pain in extremity [Unknown]
  - Swelling [Not Recovered/Not Resolved]
  - Movement disorder [Unknown]
  - Device malfunction [Unknown]
  - Wound [Unknown]
  - Pain [Not Recovered/Not Resolved]
  - Drug ineffective [Unknown]
  - Inappropriate schedule of drug administration [Unknown]
  - Joint lock [Unknown]

NARRATIVE: CASE EVENT DATE: 201605
